FAERS Safety Report 5924565-3 (Version None)
Quarter: 2008Q3

REPORT INFORMATION
  Report Type: 
  Country: None (occurrence: None)
  Receive Date: 20080909
  Receipt Date: 20080402
  Transmission Date: 20090109
  Serious: Yes (Death, Hospitalization)
  Sender: FDA-Public Use
  Company Number: 163-20785-08021092

PATIENT
  Age: 40 Year
  Sex: Female

DRUGS (12)
  1. THALOMID [Suspect]
     Indication: MULTIPLE MYELOMA
     Dosage: 100 MG, 1 IN 1 D, ORAL
     Route: 048
     Dates: start: 20071215, end: 20080202
  2. COUMADIN [Concomitant]
  3. ALLOPURINOL [Concomitant]
  4. MORPHINE [Concomitant]
  5. ZOFRAN [Concomitant]
  6. COMPAZINE [Concomitant]
  7. COLACE (DOCUSATE SODIUM) [Concomitant]
  8. NEXIUM [Concomitant]
  9. LACTULOSE [Concomitant]
  10. BACTRIM DS [Concomitant]
  11. ACYCLOVIR [Concomitant]
  12. FLUCONAZOLE [Concomitant]

REACTIONS (2)
  - ASTHENIA [None]
  - MULTIPLE MYELOMA [None]
